FAERS Safety Report 13055903 (Version 1)
Quarter: 2016Q4

REPORT INFORMATION
  Report Type: Report from Study
  Country: US (occurrence: US)
  Receive Date: 20161222
  Receipt Date: 20161222
  Transmission Date: 20170207
  Serious: Yes (Other)
  Sender: FDA-Public Use
  Company Number: US-PFIZER INC-2016580661

PATIENT
  Age: 63 Year
  Sex: Female

DRUGS (1)
  1. IBRANCE [Suspect]
     Active Substance: PALBOCICLIB
     Indication: BREAST CANCER
     Dosage: 75 MG, CYCLIC (DAILY; 3 WEEKS ON / 1 WEEK OFF)
     Route: 048
     Dates: start: 20160119

REACTIONS (4)
  - Oral pain [Unknown]
  - Cognitive disorder [Unknown]
  - Alopecia [Unknown]
  - Bone marrow failure [Unknown]
